FAERS Safety Report 14701723 (Version 2)
Quarter: 2018Q4

REPORT INFORMATION
  Report Type: Report from Study
  Country: US (occurrence: US)
  Receive Date: 20180331
  Receipt Date: 20181116
  Transmission Date: 20190204
  Serious: No
  Sender: FDA-Public Use
  Company Number: PHEH2018US012411

PATIENT
  Sex: Female

DRUGS (1)
  1. GILENYA [Suspect]
     Active Substance: FINGOLIMOD HYDROCHLORIDE
     Indication: MULTIPLE SCLEROSIS
     Dosage: 0.5 MG, QD
     Route: 048
     Dates: start: 20180222

REACTIONS (7)
  - Vision blurred [Unknown]
  - White blood cell count decreased [Unknown]
  - Visual impairment [Unknown]
  - Anaemia [Unknown]
  - Contusion [Unknown]
  - Pain in extremity [Unknown]
  - Arthralgia [Unknown]
